FAERS Safety Report 18739048 (Version 1)
Quarter: 2021Q1

REPORT INFORMATION
  Report Type: Report from Study
  Country: IN (occurrence: IN)
  Receive Date: 20210114
  Receipt Date: 20210114
  Transmission Date: 20210419
  Serious: Yes (Death)
  Sender: FDA-Public Use
  Company Number: PHHY2019IN041690

PATIENT
  Age: 80 Year
  Sex: Male

DRUGS (2)
  1. REVOLADE [Suspect]
     Active Substance: ELTROMBOPAG OLAMINE
     Dosage: 25 MG, QD
     Route: 048
     Dates: start: 20190106
  2. REVOLADE [Suspect]
     Active Substance: ELTROMBOPAG OLAMINE
     Indication: IMMUNE THROMBOCYTOPENIA
     Dosage: 50 MG, QD
     Route: 048
     Dates: start: 20181006, end: 20190105

REACTIONS (3)
  - Platelet count increased [Unknown]
  - Pyrexia [Unknown]
  - Platelet count decreased [Fatal]

NARRATIVE: CASE EVENT DATE: 20190105
